FAERS Safety Report 13770239 (Version 1)
Quarter: 2017Q3

REPORT INFORMATION
  Report Type: Spontaneous
  Country: US (occurrence: US)
  Receive Date: 20170719
  Receipt Date: 20170719
  Transmission Date: 20171127
  Serious: No
  Sender: FDA-Public Use
  Company Number: US-BIOGEN-2017BI00432243

PATIENT
  Age: 39 Year

DRUGS (1)
  1. AVONEX [Suspect]
     Active Substance: INTERFERON BETA-1A
     Indication: MULTIPLE SCLEROSIS
     Route: 065

REACTIONS (5)
  - Headache [Unknown]
  - Influenza like illness [Unknown]
  - Respiratory rate decreased [Unknown]
  - Bradyphrenia [Unknown]
  - Inflammation [Unknown]
